FAERS Safety Report 8609257-4 (Version None)
Quarter: 2012Q3

REPORT INFORMATION
  Report Type: 
  Country: None (occurrence: None)
  Receive Date: 20120821
  Receipt Date: 20120814
  Transmission Date: 20120928
  Serious: Yes (Hospitalization)
  Sender: FDA-Public Use
  Company Number: NZ-B.I. PHARMACEUTICALS,INC./RIDGEFIELD-2012-AU-01425AU

PATIENT
  Age: 83 Year
  Sex: Male

DRUGS (6)
  1. OMEPRAZOLE [Suspect]
     Dosage: 40 MG
     Route: 048
  2. DOXAZOSIN MESYLATE [Suspect]
     Indication: BENIGN PROSTATIC HYPERPLASIA
     Dosage: 5 MG
     Route: 048
  3. METOPROLOL TARTRATE [Suspect]
     Indication: ESSENTIAL HYPERTENSION
     Dosage: 47.5 MG
     Route: 048
     Dates: start: 20111124
  4. ZOPICLONE [Suspect]
     Indication: SLEEP DISORDER
     Dosage: 3.75 MG
     Route: 048
  5. PRADAXA [Suspect]
     Indication: ATRIAL FIBRILLATION
     Dosage: 110 MG
     Route: 048
     Dates: start: 20111124
  6. PRADAXA [Suspect]
     Indication: ATRIAL FLUTTER

REACTIONS (5)
  - DEPRESSION [None]
  - AGGRESSION [None]
  - FATIGUE [None]
  - HYPERCALCAEMIA [None]
  - SUICIDAL IDEATION [None]
